FAERS Safety Report 8755980 (Version 2)
Quarter: 2013Q1

REPORT INFORMATION
  Report Type: Spontaneous
  Country: US (occurrence: None)
  Receive Date: 20120814
  Receipt Date: 20130221
  Transmission Date: 20140127
  Serious: Yes (Other)
  Sender: FDA-Public Use
  Company Number: IMP_05955_2012

PATIENT
  Age: 57 Year
  Sex: Female
  Weight: 54.43 kg

DRUGS (5)
  1. PILOCARPINE HYDROCHLORIDE [Suspect]
     Indication: SJOGREN^S SYNDROME
     Dates: start: 20120709, end: 20120719
  2. PREDNISONE [Concomitant]
  3. PROCARDIA [Concomitant]
  4. ZOVIRAX [Concomitant]
  5. SYNTHROID [Concomitant]

REACTIONS (6)
  - Blindness [None]
  - Visual acuity reduced [None]
  - Adverse drug reaction [None]
  - Vision blurred [None]
  - Lacrimation increased [None]
  - Abnormal sensation in eye [None]
